FAERS Safety Report 22126570 (Version 1)
Quarter: 2023Q1

REPORT INFORMATION
  Report Type: Spontaneous
  Country: US (occurrence: None)
  Receive Date: 20230322
  Receipt Date: 20230322
  Transmission Date: 20230417
  Serious: No
  Sender: FDA-Public Use
  Company Number: None

PATIENT

DRUGS (1)
  1. DOBUTAMINE HYDROCHLORIDE [Suspect]
     Active Substance: DOBUTAMINE HYDROCHLORIDE

REACTIONS (6)
  - Product supply issue [None]
  - Product availability issue [None]
  - Device programming error [None]
  - Incorrect dose administered [None]
  - Incorrect drug administration rate [None]
  - Therapeutic response unexpected [None]
